FAERS Safety Report 11766767 (Version 2)
Quarter: 2016Q1

REPORT INFORMATION
  Report Type: Spontaneous
  Country: US (occurrence: US)
  Receive Date: 20151123
  Receipt Date: 20160324
  Transmission Date: 20160525
  Serious: No
  Sender: FDA-Public Use
  Company Number: US-ELI_LILLY_AND_COMPANY-US201510008521

PATIENT
  Sex: Female
  Weight: 83.9 kg

DRUGS (2)
  1. CYMBALTA [Suspect]
     Active Substance: DULOXETINE HYDROCHLORIDE
     Indication: PAIN
     Dosage: 30 MG, QD
     Route: 065
     Dates: start: 20150515, end: 201507
  2. CYMBALTA [Suspect]
     Active Substance: DULOXETINE HYDROCHLORIDE
     Dosage: 20 MG, QD
     Route: 065
     Dates: end: 20150629

REACTIONS (10)
  - Off label use [Unknown]
  - Urinary incontinence [Recovered/Resolved]
  - Anosmia [Not Recovered/Not Resolved]
  - Dry mouth [Recovered/Resolved]
  - Diarrhoea [Recovered/Resolved]
  - Anxiety [Recovered/Resolved]
  - Ageusia [Not Recovered/Not Resolved]
  - Sinus disorder [Not Recovered/Not Resolved]
  - Orgasmic sensation decreased [Recovered/Resolved]
  - Insomnia [Recovered/Resolved]
